FAERS Safety Report 9614731 (Version 1)
Quarter: 2013Q4

REPORT INFORMATION
  Report Type: Not Available
  Country: GB (occurrence: GB)
  Receive Date: 20131011
  Receipt Date: 20131011
  Transmission Date: 20140711
  Serious: Yes (Life-Threatening)
  Sender: FDA-Public Use
  Company Number: GB-ASTELLAS-2013EU008655

PATIENT
  Age: 72 Year
  Sex: Female

DRUGS (6)
  1. SOLIFENACIN [Suspect]
     Indication: URINARY INCONTINENCE
     Dosage: 5 MG, UNKNOWN/D
     Route: 048
     Dates: start: 20130912, end: 20130916
  2. BISACODYL [Concomitant]
     Dosage: 5 MG, UID/QD
     Route: 048
  3. CALCICHEW D3 [Concomitant]
     Dosage: 1 DF, BID
     Route: 048
  4. CARBOCISTEINE [Concomitant]
     Dosage: 375 MG, QID
     Route: 048
  5. GABAPENTIN [Concomitant]
     Dosage: 200 MG, TID
     Route: 048
  6. SERTRALINE [Concomitant]
     Dosage: 50 MG, UID/QD
     Route: 048

REACTIONS (2)
  - Angioedema [Recovering/Resolving]
  - Stridor [Recovering/Resolving]
